FAERS Safety Report 17843792 (Version 1)
Quarter: 2020Q2

REPORT INFORMATION
  Report Type: Report from Study
  Country: None (occurrence: US)
  Receive Date: 20200531
  Receipt Date: 20200531
  Transmission Date: 20200714
  Serious: No
  Sender: FDA-Public Use
  Company Number: US-BIOVITRUM-2019US2121

PATIENT
  Sex: Female

DRUGS (2)
  1. KINERET [Suspect]
     Active Substance: ANAKINRA
     Indication: FAMILIAL MEDITERRANEAN FEVER
     Route: 058
     Dates: start: 20190412
  2. KINERET [Suspect]
     Active Substance: ANAKINRA
     Indication: JUVENILE IDIOPATHIC ARTHRITIS

REACTIONS (2)
  - Gastroenteritis viral [Unknown]
  - Off label use [Not Recovered/Not Resolved]
